FAERS Safety Report 25196697 (Version 1)
Quarter: 2025Q2

REPORT INFORMATION
  Report Type: Spontaneous
  Country: US (occurrence: US)
  Receive Date: 20250415
  Receipt Date: 20250415
  Transmission Date: 20250716
  Serious: Yes (Other)
  Sender: IPCA
  Company Number: US-IPCA LABORATORIES LIMITED-IPC-2025-US-000900

PATIENT

DRUGS (1)
  1. METFORMIN [Suspect]
     Active Substance: METFORMIN HYDROCHLORIDE
     Indication: Product used for unknown indication
     Route: 065

REACTIONS (3)
  - Renal failure [Recovered/Resolved]
  - Septic shock [Recovered/Resolved]
  - Metabolic acidosis [Recovered/Resolved]
